FAERS Safety Report 6713522-5 (Version None)
Quarter: 2010Q2

REPORT INFORMATION
  Report Type: 
  Country: None (occurrence: None)
  Receive Date: 20100506
  Receipt Date: 20100430
  Transmission Date: 20101027
  Serious: Yes (Death)
  Sender: FDA-Public Use
  Company Number: DE-SANOFI-AVENTIS-2010SA012253

PATIENT
  Age: 68 Year
  Sex: Male
  Weight: 71 kg

DRUGS (12)
  1. ISCOVER [Suspect]
     Route: 048
     Dates: start: 20100221, end: 20100227
  2. ISCOVER [Suspect]
     Indication: CORONARY ARTERY OCCLUSION
     Route: 048
     Dates: start: 20100221, end: 20100227
  3. ISCOVER [Suspect]
     Indication: CORONARY ARTERY STENOSIS
     Route: 048
     Dates: start: 20100221, end: 20100227
  4. ISCOVER [Suspect]
     Route: 048
     Dates: start: 20100220, end: 20100220
  5. ISCOVER [Suspect]
     Route: 048
     Dates: start: 20100220, end: 20100220
  6. ISCOVER [Suspect]
     Route: 048
     Dates: start: 20100220, end: 20100220
  7. GODAMED [Suspect]
     Indication: CORONARY ARTERIAL STENT INSERTION
     Route: 048
     Dates: start: 20100220, end: 20100227
  8. PANTOZOL [Concomitant]
     Indication: PROPHYLAXIS
     Route: 048
     Dates: start: 20100220, end: 20100227
  9. DELIX [Concomitant]
     Indication: MYOCARDIAL INFARCTION
     Route: 048
     Dates: start: 20100221, end: 20100226
  10. SIMVASTATIN [Concomitant]
     Route: 048
     Dates: start: 20100221, end: 20100226
  11. INSPRA [Concomitant]
     Indication: MYOCARDIAL INFARCTION
     Route: 048
     Dates: start: 20100221, end: 20100226
  12. CONCOR [Concomitant]
     Indication: MYOCARDIAL INFARCTION
     Route: 048
     Dates: start: 20100221, end: 20100226

REACTIONS (4)
  - OFF LABEL USE [None]
  - OVERDOSE [None]
  - PRODUCT QUALITY ISSUE [None]
  - THROMBOSIS IN DEVICE [None]
